FAERS Safety Report 24153485 (Version 1)
Quarter: 2024Q3

REPORT INFORMATION
  Report Type: Spontaneous
  Country: TR (occurrence: TR)
  Receive Date: 20240730
  Receipt Date: 20240730
  Transmission Date: 20241016
  Serious: Yes (Death, Hospitalization, Other)
  Sender: ASTELLAS
  Company Number: TR-ASTELLAS-2024US020985

PATIENT
  Age: 66 Year
  Sex: Male

DRUGS (1)
  1. PADCEV [Suspect]
     Active Substance: ENFORTUMAB VEDOTIN-EJFV
     Indication: Product used for unknown indication
     Dosage: UNK UNK, CYCLIC
     Route: 065
     Dates: start: 20230831, end: 20231115

REACTIONS (6)
  - Death [Fatal]
  - Anaemia [Unknown]
  - General physical condition abnormal [Unknown]
  - Enterococcal bacteraemia [Unknown]
  - Urinary tract infection enterococcal [Unknown]
  - Off label use [Unknown]

NARRATIVE: CASE EVENT DATE: 20230831
